FAERS Safety Report 11585588 (Version 1)
Quarter: 2015Q4

REPORT INFORMATION
  Report Type: Report from Study
  Country: BR (occurrence: BR)
  Receive Date: 20151001
  Receipt Date: 20151001
  Transmission Date: 20160304
  Serious: Yes (Other)
  Sender: FDA-Public Use
  Company Number: BR-GLAXOSMITHKLINE-BR2015GSK139743

PATIENT
  Age: 5 Year
  Sex: Female

DRUGS (1)
  1. FLUTICASONE PROPIONATE. [Suspect]
     Active Substance: FLUTICASONE PROPIONATE
     Indication: PRODUCT USED FOR UNKNOWN INDICATION
     Dosage: UNK, 100 MG
     Dates: start: 2012

REACTIONS (2)
  - Drug ineffective [Not Recovered/Not Resolved]
  - Asthmatic crisis [Not Recovered/Not Resolved]

NARRATIVE: CASE EVENT DATE: 20150927
